FAERS Safety Report 18570318 (Version 7)
Quarter: 2025Q2

REPORT INFORMATION
  Report Type: Spontaneous
  Country: US (occurrence: US)
  Receive Date: 20201202
  Receipt Date: 20250430
  Transmission Date: 20250717
  Serious: Yes (Other)
  Sender: PFIZER
  Company Number: US-PFIZER INC-2020474561

PATIENT
  Age: 78 Year
  Sex: Female

DRUGS (2)
  1. XELJANZ XR [Suspect]
     Active Substance: TOFACITINIB CITRATE
     Indication: Rheumatoid arthritis
  2. CARVEDILOL [Concomitant]
     Active Substance: CARVEDILOL
     Indication: Blood pressure abnormal

REACTIONS (3)
  - Rheumatoid arthritis [Unknown]
  - COVID-19 [Unknown]
  - Brain fog [Not Recovered/Not Resolved]

NARRATIVE: CASE EVENT DATE: 20240930
